FAERS Safety Report 9407138 (Version 1)
Quarter: 2013Q3

REPORT INFORMATION
  Report Type: Spontaneous
  Country: IT (occurrence: IT)
  Receive Date: 20130718
  Receipt Date: 20130718
  Transmission Date: 20140515
  Serious: Yes (Hospitalization)
  Sender: FDA-Public Use
  Company Number: IT-BAYER-2013-084081

PATIENT
  Age: 34 Year
  Sex: Male

DRUGS (2)
  1. ASPIRINA [Suspect]
     Indication: ARTHROSCOPY
     Dosage: 500 MG, PRN
     Route: 048
     Dates: start: 20120228, end: 20120319
  2. PARACETAMOL W/TRAMADOL HYDROCHLORIDE [Suspect]
     Indication: ARTHROSCOPY
     Dosage: 1 DF, PRN
     Route: 048
     Dates: start: 20120228, end: 20120319

REACTIONS (3)
  - Gastrointestinal haemorrhage [Recovering/Resolving]
  - Mallory-Weiss syndrome [Recovering/Resolving]
  - Anaemia [Recovering/Resolving]
